FAERS Safety Report 24281171 (Version 1)
Quarter: 2024Q3

REPORT INFORMATION
  Report Type: Spontaneous
  Country: US (occurrence: US)
  Receive Date: 20240904
  Receipt Date: 20240904
  Transmission Date: 20241017
  Serious: No
  Sender: AMGEN
  Company Number: US-AMGEN-USASP2024173545

PATIENT
  Age: 64 Year
  Sex: Male

DRUGS (2)
  1. REPATHA [Suspect]
     Active Substance: EVOLOCUMAB
     Indication: Blood cholesterol abnormal
     Dosage: 140 MILLIGRAM, Q2WK
     Route: 030
     Dates: start: 202406
  2. REPATHA [Suspect]
     Active Substance: EVOLOCUMAB
     Dosage: UNK
     Route: 030

REACTIONS (4)
  - Device difficult to use [Unknown]
  - Incorrect route of product administration [Unknown]
  - Product communication issue [Unknown]
  - Injection site bruising [Recovering/Resolving]

NARRATIVE: CASE EVENT DATE: 20240601
